FAERS Safety Report 6451414-X (Version None)
Quarter: 2009Q4

REPORT INFORMATION
  Report Type: 
  Country: None (occurrence: None)
  Receive Date: 20091123
  Receipt Date: 20091118
  Transmission Date: 20100525
  Serious: Yes (Life-Threatening, Hospitalization)
  Sender: FDA-Public Use
  Company Number: FR-BRISTOL-MYERS SQUIBB COMPANY-14769301

PATIENT
  Age: 70 Year
  Sex: Female

DRUGS (7)
  1. EFFERALGAN [Suspect]
     Indication: TOOTH DISORDER
     Dates: end: 20090815
  2. APROVEL [Suspect]
     Dates: end: 20090815
  3. TAHOR [Suspect]
     Dates: end: 20090815
  4. INIPOMP [Suspect]
     Dates: end: 20090815
  5. BIRODOGYL [Suspect]
     Dates: start: 20090803, end: 20090806
  6. INSULIN [Concomitant]
  7. LEVOTHYROXINE SODIUM [Concomitant]

REACTIONS (2)
  - CYTOLYTIC HEPATITIS [None]
  - PROTHROMBIN LEVEL DECREASED [None]
